FAERS Safety Report 16674437 (Version 1)
Quarter: 2019Q3

REPORT INFORMATION
  Report Type: Spontaneous
  Country: JP (occurrence: JP)
  Receive Date: 20190806
  Receipt Date: 20190806
  Transmission Date: 20191004
  Serious: Yes (Hospitalization)
  Sender: FDA-Public Use
  Company Number: JP-ASTRAZENECA-2018SE45317

PATIENT
  Age: 29247 Day
  Sex: Female
  Weight: 47 kg

DRUGS (23)
  1. ARTIST [Suspect]
     Active Substance: CARVEDILOL
     Route: 048
     Dates: start: 20160106, end: 20160119
  2. ELIQUIS [Concomitant]
     Active Substance: APIXABAN
     Route: 048
     Dates: start: 201803
  3. ENALAPRIL MALEATE. [Concomitant]
     Active Substance: ENALAPRIL MALEATE
     Indication: CARDIAC FAILURE CONGESTIVE
     Route: 048
     Dates: start: 201512, end: 20180322
  4. SPIRONOLACTONE. [Concomitant]
     Active Substance: SPIRONOLACTONE
     Route: 048
     Dates: start: 20161108
  5. THYRADIN S [Concomitant]
     Active Substance: LEVOTHYROXINE SODIUM
     Indication: HYPOTHYROIDISM
     Route: 048
     Dates: start: 20170616
  6. MIYA-BM [Concomitant]
     Active Substance: CLOSTRIDIUM BUTYRICUM SPORES STRAIN M-55
     Route: 048
     Dates: start: 20170606
  7. PIMOBENDAN [Concomitant]
     Active Substance: PIMOBENDAN
     Route: 048
  8. LACTEC-D [Concomitant]
     Route: 041
     Dates: start: 20170629, end: 20170630
  9. LOSARTAN POTASSIUM. [Concomitant]
     Active Substance: LOSARTAN POTASSIUM
     Dates: start: 20180322
  10. ARTIST [Suspect]
     Active Substance: CARVEDILOL
     Route: 048
     Dates: start: 20160720, end: 20160726
  11. CLOPIDOGREL [Concomitant]
     Active Substance: CLOPIDOGREL BISULFATE
     Route: 048
  12. ARTIST [Suspect]
     Active Substance: CARVEDILOL
     Route: 048
     Dates: start: 20151225, end: 20160105
  13. ARTIST [Suspect]
     Active Substance: CARVEDILOL
     Route: 048
     Dates: start: 20160727
  14. ETIZOLAM [Concomitant]
     Active Substance: ETIZOLAM
     Route: 048
     Dates: start: 20170126
  15. AMIODARONE HYDROCHLORIDE. [Suspect]
     Active Substance: AMIODARONE HYDROCHLORIDE
     Route: 048
     Dates: start: 20160804
  16. AZOSEMIDE [Concomitant]
     Active Substance: AZOSEMIDE
     Route: 048
     Dates: start: 20161108
  17. THYRADIN S [Concomitant]
     Active Substance: LEVOTHYROXINE SODIUM
     Indication: HYPOTHYROIDISM
     Route: 048
  18. ETIZOLAM [Concomitant]
     Active Substance: ETIZOLAM
     Dates: start: 20170126
  19. NEXIUM [Suspect]
     Active Substance: ESOMEPRAZOLE MAGNESIUM
     Route: 048
     Dates: start: 20170629
  20. ARTIST [Suspect]
     Active Substance: CARVEDILOL
     Route: 048
     Dates: start: 20160120, end: 20160719
  21. THYRADIN S [Concomitant]
     Active Substance: LEVOTHYROXINE SODIUM
     Indication: HYPOTHYROIDISM
     Route: 048
  22. FEBURIC [Concomitant]
     Active Substance: FEBUXOSTAT
     Route: 048
  23. ETIZOLAM [Concomitant]
     Active Substance: ETIZOLAM
     Route: 048

REACTIONS (21)
  - Back pain [Recovering/Resolving]
  - Eye discharge [Recovering/Resolving]
  - Diarrhoea [Recovering/Resolving]
  - Atrial fibrillation [Unknown]
  - Haemorrhage [Unknown]
  - Weight decreased [Recovering/Resolving]
  - Cardiac failure [Recovered/Resolved]
  - Blood thyroid stimulating hormone increased [Not Recovered/Not Resolved]
  - Liver disorder [Recovering/Resolving]
  - Epigastric discomfort [Recovering/Resolving]
  - Chronic kidney disease [Recovering/Resolving]
  - Femoral neck fracture [Recovering/Resolving]
  - Thyroxine free increased [Recovering/Resolving]
  - Oedema [Recovering/Resolving]
  - Spinal compression fracture [Recovered/Resolved]
  - Hypotension [Recovering/Resolving]
  - Fall [Recovering/Resolving]
  - Hypoalbuminaemia [Recovering/Resolving]
  - Anaemia [Recovering/Resolving]
  - Constipation [Not Recovered/Not Resolved]
  - Hypokalaemia [Recovering/Resolving]

NARRATIVE: CASE EVENT DATE: 20171013
